FAERS Safety Report 7465756-2 (Version None)
Quarter: 2011Q2

REPORT INFORMATION
  Report Type: 
  Country: None (occurrence: None)
  Receive Date: 20110509
  Receipt Date: 20110421
  Transmission Date: 20111010
  Serious: No
  Sender: FDA-Public Use
  Company Number: US-B.I. PHARMACEUTICALS,INC./RIDGEFIELD-2011-BP-05566BP

PATIENT
  Age: 88 Year
  Sex: Male

DRUGS (10)
  1. QUINAPRIL [Concomitant]
     Dosage: 20 MG
     Dates: start: 20100730
  2. COREG [Concomitant]
     Dosage: 12.5 MG
     Dates: start: 20101227
  3. LASIX [Concomitant]
     Dosage: 40 MG
     Dates: start: 20100730
  4. LIPITOR [Concomitant]
     Dosage: 10 MG
     Dates: start: 20100730
  5. AZILECT [Concomitant]
  6. PRADAXA [Suspect]
     Indication: ATRIAL FIBRILLATION
     Dosage: 300 MG
     Route: 048
     Dates: start: 20110203, end: 20110208
  7. POTASSIUM [Concomitant]
     Dosage: 20 MEQ
  8. ALLOPURINOL [Concomitant]
  9. PRANDIN [Concomitant]
  10. SINEMET [Concomitant]

REACTIONS (3)
  - ABDOMINAL DISCOMFORT [None]
  - DYSPHAGIA [None]
  - BACK PAIN [None]
